FAERS Safety Report 9126155 (Version 1)
Quarter: 2013Q1

REPORT INFORMATION
  Report Type: Report from Study
  Country: CO (occurrence: CO)
  Receive Date: 20130117
  Receipt Date: 20130117
  Transmission Date: 20140127
  Serious: Yes (Other)
  Sender: FDA-Public Use
  Company Number: CO-ROCHE-1180014

PATIENT
  Sex: Male

DRUGS (2)
  1. MYCOPHENOLATE MOFETIL [Suspect]
     Indication: LIVER TRANSPLANT
     Route: 048
     Dates: start: 20110329
  2. PREDNISOLONE [Suspect]
     Indication: LIVER TRANSPLANT
     Route: 048
     Dates: start: 20110401, end: 20121215

REACTIONS (2)
  - Spinal fracture [Recovering/Resolving]
  - Constipation [Recovering/Resolving]
